FAERS Safety Report 7052531-6 (Version None)
Quarter: 2010Q4

REPORT INFORMATION
  Report Type: 
  Country: None (occurrence: None)
  Receive Date: 20101014
  Receipt Date: 20100930
  Transmission Date: 20110411
  Serious: Yes (Other)
  Sender: FDA-Public Use
  Company Number: 019779

PATIENT
  Sex: Female

DRUGS (3)
  1. KEPPRA [Suspect]
     Indication: EPILEPSY
     Dosage: 2000 MG
  2. FOLIC ACID [Concomitant]
  3. FROVA [Concomitant]

REACTIONS (8)
  - AMNIOTIC FLUID VOLUME DECREASED [None]
  - BLOOD URINE PRESENT [None]
  - CAESAREAN SECTION [None]
  - DRUG EXPOSURE DURING PREGNANCY [None]
  - FOETAL HEART RATE ABNORMAL [None]
  - OVARIAN CYST [None]
  - RED BLOOD CELLS URINE POSITIVE [None]
  - URINE ABNORMALITY [None]
